FAERS Safety Report 16444030 (Version 1)
Quarter: 2019Q2

REPORT INFORMATION
  Report Type: Spontaneous
  Country: GB (occurrence: GB)
  Receive Date: 20190618
  Receipt Date: 20190618
  Transmission Date: 20190711
  Serious: Yes (Disabling)
  Sender: FDA-Public Use
  Company Number: GB-ACCORD-133431

PATIENT
  Age: 44 Year
  Sex: Male
  Weight: 98 kg

DRUGS (8)
  1. RISPERIDONE. [Concomitant]
     Active Substance: RISPERIDONE
  2. OMEPRAZOLE. [Concomitant]
     Active Substance: OMEPRAZOLE
  3. METHADONE [Concomitant]
     Active Substance: METHADONE HYDROCHLORIDE
     Dosage: LONG TERM
  4. DIAZEPAM. [Concomitant]
     Active Substance: DIAZEPAM
  5. CLOZAPINE. [Suspect]
     Active Substance: CLOZAPINE
     Indication: ACUTE PSYCHOSIS
     Dosage: TITRATED
     Route: 048
     Dates: start: 20181206, end: 20181213
  6. CODEINE [Concomitant]
     Active Substance: CODEINE
  7. PROCYCLIDINE [Concomitant]
     Active Substance: PROCYCLIDINE
  8. EPCLUSA [Concomitant]
     Active Substance: SOFOSBUVIR\VELPATASVIR
     Indication: HEPATITIS C
     Dosage: SOFOSBUVIR/VELPATASVIR.

REACTIONS (1)
  - Oedema peripheral [Recovered/Resolved]

NARRATIVE: CASE EVENT DATE: 20181211
